FAERS Safety Report 16505921 (Version 3)
Quarter: 2019Q3

REPORT INFORMATION
  Report Type: Spontaneous
  Country: BR (occurrence: BR)
  Receive Date: 20190701
  Receipt Date: 20190705
  Transmission Date: 20191004
  Serious: Yes (Hospitalization, Disabling, Other)
  Sender: FDA-Public Use
  Company Number: BR-ABBVIE-19K-020-2838302-00

PATIENT
  Age: 54 Year
  Sex: Female

DRUGS (4)
  1. LEFLUNOMIDE. [Concomitant]
     Active Substance: LEFLUNOMIDE
     Indication: PRODUCT USED FOR UNKNOWN INDICATION
     Route: 065
  2. PREDNISONE. [Concomitant]
     Active Substance: PREDNISONE
     Route: 065
     Dates: start: 201602
  3. HUMIRA [Suspect]
     Active Substance: ADALIMUMAB
     Indication: RHEUMATOID ARTHRITIS
     Route: 058
     Dates: start: 20160119
  4. PREDNISONE. [Concomitant]
     Active Substance: PREDNISONE
     Indication: PRODUCT USED FOR UNKNOWN INDICATION
     Route: 065
     Dates: start: 201602

REACTIONS (33)
  - Coordination abnormal [Not Recovered/Not Resolved]
  - Cough [Unknown]
  - Muscular weakness [Unknown]
  - Polyuria [Unknown]
  - Peripheral sensory neuropathy [Unknown]
  - Gait disturbance [Unknown]
  - Paraesthesia [Not Recovered/Not Resolved]
  - Blood glucose abnormal [Unknown]
  - Ataxia [Unknown]
  - Haemothorax [Unknown]
  - Dyspepsia [Unknown]
  - Pain in extremity [Unknown]
  - Acute polyneuropathy [Unknown]
  - Pain in extremity [Unknown]
  - Hypoaesthesia [Unknown]
  - Paraesthesia [Not Recovered/Not Resolved]
  - Choking [Recovered/Resolved with Sequelae]
  - Dyspnoea [Unknown]
  - Pain [Unknown]
  - CSF test abnormal [Unknown]
  - Balance disorder [Unknown]
  - Dysstasia [Recovering/Resolving]
  - Paraesthesia [Unknown]
  - Insomnia [Unknown]
  - Fall [Unknown]
  - Dizziness [Unknown]
  - Pruritus [Not Recovered/Not Resolved]
  - Hypoaesthesia [Unknown]
  - Loss of proprioception [Unknown]
  - Abdominal pain upper [Unknown]
  - Areflexia [Unknown]
  - Abdominal discomfort [Unknown]
  - Extensor plantar response [Unknown]

NARRATIVE: CASE EVENT DATE: 20160131
